FAERS Safety Report 8321639-7 (Version None)
Quarter: 2012Q2

REPORT INFORMATION
  Report Type: 
  Country: None (occurrence: None)
  Receive Date: 20120430
  Receipt Date: 20091029
  Transmission Date: 20120825
  Serious: No
  Sender: FDA-Public Use
  Company Number: US-TEVA-2009011950

PATIENT
  Sex: Male
  Weight: 77.18 kg

DRUGS (3)
  1. NUVIGIL [Suspect]
     Indication: MULTIPLE SCLEROSIS
     Dosage: 150 MILLIGRAM;
     Route: 048
     Dates: start: 20091027
  2. CYCLOBENZAPRINE [Concomitant]
     Dates: start: 20080101
  3. BETASERON [Concomitant]
     Dates: start: 20060101

REACTIONS (6)
  - DRUG EFFECT INCREASED [None]
  - NERVOUSNESS [None]
  - INCREASED APPETITE [None]
  - INSOMNIA [None]
  - DRY MOUTH [None]
  - ABDOMINAL DISCOMFORT [None]
